FAERS Safety Report 6823460-5 (Version None)
Quarter: 2010Q3

REPORT INFORMATION
  Report Type: 
  Country: None (occurrence: None)
  Receive Date: 20100708
  Receipt Date: 20100629
  Transmission Date: 20110219
  Serious: Yes (Hospitalization)
  Sender: FDA-Public Use
  Company Number: PHHY2010FR38981

PATIENT
  Sex: Male
  Weight: 80 kg

DRUGS (4)
  1. EXELON [Suspect]
     Indication: DEMENTIA ALZHEIMER'S TYPE
     Dosage: 4.6 MG DAILY
     Route: 062
     Dates: start: 20100609, end: 20100609
  2. SINEMET [Concomitant]
     Dosage: UNK,UNK
  3. DEPAKENE [Concomitant]
     Dosage: 200 MG, TID
  4. DISCOTRINE [Concomitant]
     Dosage: 10 MG PER 24 HOURS

REACTIONS (4)
  - ATRIOVENTRICULAR BLOCK [None]
  - HEART RATE DECREASED [None]
  - LOSS OF CONSCIOUSNESS [None]
  - MALAISE [None]
